FAERS Safety Report 24717371 (Version 2)
Quarter: 2024Q4

REPORT INFORMATION
  Report Type: Spontaneous
  Country: US (occurrence: US)
  Receive Date: 20241210
  Receipt Date: 20241228
  Transmission Date: 20250115
  Serious: Yes (Other)
  Sender: TEVA
  Company Number: US-TEVA-VS-3272195

PATIENT
  Age: 43 Year
  Sex: Male

DRUGS (4)
  1. MYCOPHENOLATE MOFETIL [Suspect]
     Active Substance: MYCOPHENOLATE MOFETIL
     Indication: Tubulointerstitial nephritis
     Route: 065
  2. DOXORUBICIN [Concomitant]
     Active Substance: DOXORUBICIN
     Indication: Epithelioid sarcoma metastatic
     Route: 065
  3. IFOSFAMIDE [Suspect]
     Active Substance: IFOSFAMIDE
     Indication: Epithelioid sarcoma metastatic
     Route: 065
  4. TAZEMETOSTAT [Suspect]
     Active Substance: TAZEMETOSTAT
     Indication: Epithelioid sarcoma metastatic
     Route: 065

REACTIONS (8)
  - Toxicity to various agents [Unknown]
  - Anaemia [Unknown]
  - Tubulointerstitial nephritis [Unknown]
  - Fanconi syndrome [Unknown]
  - Drug ineffective [Unknown]
  - Tubulointerstitial nephritis [Unknown]
  - Necrosis [Unknown]
  - Nephropathy [Unknown]
